FAERS Safety Report 6558491-6 (Version None)
Quarter: 2010Q1

REPORT INFORMATION
  Report Type: 
  Country: None (occurrence: None)
  Receive Date: 20100129
  Receipt Date: 20100121
  Transmission Date: 20100710
  Serious: Yes (Life-Threatening, Other)
  Sender: FDA-Public Use
  Company Number: GXKR2010FR01044

PATIENT
  Age: 57 Year
  Sex: Female

DRUGS (16)
  1. ATENOLOL [Suspect]
     Indication: HYPERTENSION
     Route: 065
  2. ATENOLOL [Suspect]
     Dosage: 100 MG/DAY
     Route: 065
     Dates: start: 20070308, end: 20070422
  3. MYCOPHENOLATE MOFETIL (NGX) [Suspect]
     Indication: IMMUNOSUPPRESSION
     Dosage: UNK
     Route: 065
     Dates: start: 20061101, end: 20070201
  4. TACROLIMUS [Concomitant]
     Indication: IMMUNOSUPPRESSION
     Dosage: UNK
     Route: 065
     Dates: start: 20061101
  5. STEROIDS NOS [Concomitant]
     Indication: IMMUNOSUPPRESSION
     Dosage: UNK
     Route: 065
     Dates: start: 20061101
  6. METHYLPREDNISOLONE [Concomitant]
     Dosage: 500 MG, UNK
     Route: 042
     Dates: start: 20061101
  7. METHYLPREDNISOLONE [Concomitant]
     Dosage: TAPERED FROM 200 TO 20 MG
     Route: 065
  8. METHYLPREDNISOLONE [Concomitant]
     Dosage: 20 MG/DAY
     Route: 065
  9. METHYLPREDNISOLONE [Concomitant]
     Dosage: TAPERED BY 2.5 MG/MONTH TO MAINTENANCE DOSE OF 0-5 MG/DAY
     Route: 065
  10. PREDNISONE [Concomitant]
     Indication: LIVER TRANSPLANT REJECTION
     Route: 065
  11. PREDNISONE [Concomitant]
     Dosage: 500 MG/DAY, 3 DOSES
     Route: 065
  12. SULFAMETHOXAZOLE [Concomitant]
     Indication: IMMUNOSUPPRESSION
     Dosage: ON WEEKENDS ONLY
     Route: 065
  13. ACETYLSALICYLIC ACID [Concomitant]
     Route: 065
  14. URSODEOXYCHOLIC ACID [Concomitant]
     Route: 065
  15. VALGANCICLOVIR HCL [Concomitant]
     Route: 065
  16. ESOMEPRAZOLE [Concomitant]
     Route: 065

REACTIONS (9)
  - ASCITES [None]
  - ASTHENIA [None]
  - CHOLESTASIS [None]
  - HEPATIC CIRRHOSIS [None]
  - HEPATIC FAILURE [None]
  - HEPATITIS [None]
  - LEUKOPENIA [None]
  - LIVER TRANSPLANT [None]
  - PRURITUS [None]
